FAERS Safety Report 7617426-5 (Version None)
Quarter: 2011Q3

REPORT INFORMATION
  Report Type: 
  Country: None (occurrence: None)
  Receive Date: 20110718
  Receipt Date: 20110713
  Transmission Date: 20111222
  Serious: Yes (Other)
  Sender: FDA-Public Use
  Company Number: US-PFIZER INC-2011158625

PATIENT
  Sex: Female
  Weight: 102 kg

DRUGS (11)
  1. ZOLPIDEM [Concomitant]
     Indication: SOMNOLENCE
     Dosage: UNK
  2. LORATADINE [Concomitant]
     Dosage: UNK
  3. TRILEPTAL [Concomitant]
     Indication: DEPRESSION
     Dosage: UNK
  4. DICYCLOMINE [Concomitant]
     Dosage: UNK
  5. OMEPRAZOLE [Concomitant]
     Dosage: UNK
  6. MONTELUKAST [Concomitant]
     Indication: ASTHMA
     Dosage: UNK
  7. CHANTIX [Suspect]
     Indication: SMOKING CESSATION THERAPY
     Dosage: 0.5 MG, 1X/DAY
     Route: 048
     Dates: start: 20110709
  8. ABILIFY [Concomitant]
     Indication: BIPOLAR DISORDER
     Dosage: UNK
  9. CLONAZEPAM [Concomitant]
     Indication: BIPOLAR DISORDER
     Dosage: UNK
  10. ADVAIR DISKUS 100/50 [Concomitant]
     Dosage: 100/50, UNK
  11. QVAR 40 [Concomitant]
     Dosage: 40 UNK, UNK

REACTIONS (3)
  - TREMOR [None]
  - IRRITABILITY [None]
  - ASTHMA [None]
